FAERS Safety Report 14413117 (Version 1)
Quarter: 2018Q1

REPORT INFORMATION
  Report Type: Spontaneous
  Country: US (occurrence: US)
  Receive Date: 20180119
  Receipt Date: 20180119
  Transmission Date: 20180509
  Serious: Yes (Hospitalization)
  Sender: FDA-Public Use
  Company Number: None

PATIENT
  Age: 90 Year
  Sex: Male
  Weight: 60.5 kg

DRUGS (12)
  1. LIPITOR [Concomitant]
     Active Substance: ATORVASTATIN CALCIUM
  2. VITD [Concomitant]
  3. CLARITIN [Concomitant]
     Active Substance: LORATADINE
  4. COREG [Concomitant]
     Active Substance: CARVEDILOL
  5. LANOXIN [Concomitant]
     Active Substance: DIGOXIN
  6. NEURONTIN [Concomitant]
     Active Substance: GABAPENTIN
  7. SYNTHROID [Concomitant]
     Active Substance: LEVOTHYROXINE SODIUM
  8. FE [Concomitant]
     Active Substance: IRON
  9. REMERON [Concomitant]
     Active Substance: MIRTAZAPINE
  10. BUMEX [Concomitant]
     Active Substance: BUMETANIDE
  11. ELIQUIS [Suspect]
     Active Substance: APIXABAN
     Indication: ATRIAL FIBRILLATION
     Dosage: CHRONIC
     Route: 048
  12. PAP [Concomitant]

REACTIONS (3)
  - Therapy cessation [None]
  - Anaemia [None]
  - Diverticulum intestinal haemorrhagic [None]

NARRATIVE: CASE EVENT DATE: 20171001
